FAERS Safety Report 9551724 (Version 1)
Quarter: 2013Q3

REPORT INFORMATION
  Report Type: Spontaneous
  Country: US (occurrence: None)
  Receive Date: 20130923
  Receipt Date: 20130923
  Transmission Date: 20140515
  Serious: Yes (Other)
  Sender: FDA-Public Use
  Company Number: None

PATIENT
  Age: 65 Year
  Sex: Male
  Weight: 64.86 kg

DRUGS (6)
  1. NEXAVAR 200 MG BAYER [Suspect]
     Indication: HEPATIC CANCER
     Dosage: 2 PILLS BID ORAL
     Route: 048
     Dates: start: 20130801, end: 20130816
  2. ALLOPURINOL [Concomitant]
  3. ODANSETRON [Concomitant]
  4. LISINOPRIL/HCTZ [Concomitant]
  5. ADVAIR [Concomitant]
  6. VENTOLIN [Concomitant]

REACTIONS (3)
  - Pain in extremity [None]
  - Activities of daily living impaired [None]
  - Blister [None]
